FAERS Safety Report 16579282 (Version 2)
Quarter: 2019Q3

REPORT INFORMATION
  Report Type: Spontaneous
  Country: US (occurrence: US)
  Receive Date: 20190716
  Receipt Date: 20190716
  Transmission Date: 20191004
  Serious: No
  Sender: FDA-Public Use
  Company Number: US-GALDERMA-US18040836

PATIENT

DRUGS (6)
  1. ALOE VERA GEL [Concomitant]
     Active Substance: ALOE VERA LEAF
     Indication: ERYTHEMA
  2. DIFFERIN GEL [Suspect]
     Active Substance: ADAPALENE
     Indication: ACNE
     Dosage: 0.1%
     Route: 061
  3. SHEA MOISTURE CLARIFYING MUD MASK [Concomitant]
  4. WITCH HAZEL. [Concomitant]
     Active Substance: WITCH HAZEL
  5. ROSE WATER [Concomitant]
  6. SHEA MOISTURE AFRICAN BLACK BAR SOAP [Concomitant]

REACTIONS (7)
  - Therapeutic response unexpected [Recovered/Resolved]
  - Erythema [Unknown]
  - Skin irritation [Unknown]
  - Dry skin [Unknown]
  - Acne [Unknown]
  - Pruritus [Unknown]
  - Wrong technique in product usage process [Recovered/Resolved]
